FAERS Safety Report 13548224 (Version 1)
Quarter: 2017Q2

REPORT INFORMATION
  Report Type: Spontaneous
  Country: US (occurrence: US)
  Receive Date: 20170516
  Receipt Date: 20170516
  Transmission Date: 20170830
  Serious: No
  Sender: FDA-Public Use
  Company Number: US-JNJFOC-20170310962

PATIENT
  Age: 51 Year
  Sex: Female
  Weight: 89.81 kg

DRUGS (2)
  1. WOMENS ROGAINE [Suspect]
     Active Substance: MINOXIDIL
     Route: 061
  2. WOMENS ROGAINE [Suspect]
     Active Substance: MINOXIDIL
     Indication: HAIR DISORDER
     Dosage: AN UNKNOWN AMOUNT IN BALM APPLICATOR
     Route: 061
     Dates: start: 20170204

REACTIONS (4)
  - Product use in unapproved indication [Not Recovered/Not Resolved]
  - Wrong technique in product usage process [Not Recovered/Not Resolved]
  - Hair texture abnormal [Not Recovered/Not Resolved]
  - Off label use [Not Recovered/Not Resolved]
